FAERS Safety Report 16199679 (Version 2)
Quarter: 2019Q2

REPORT INFORMATION
  Report Type: Report from Study
  Country: US (occurrence: US)
  Receive Date: 20190415
  Receipt Date: 20190415
  Transmission Date: 20190711
  Serious: Yes (Other)
  Sender: FDA-Public Use
  Company Number: US-VIFOR (INTERNATIONAL) INC.-VIT-2017-04565

PATIENT
  Age: 67 Year
  Sex: Male
  Weight: 75.36 kg

DRUGS (19)
  1. VELTASSA [Suspect]
     Active Substance: PATIROMER
     Dosage: 1 PACKET
     Dates: start: 20180514
  2. VELTASSA [Suspect]
     Active Substance: PATIROMER
     Indication: HYPERKALAEMIA
     Dates: start: 20170425
  3. VELTASSA [Suspect]
     Active Substance: PATIROMER
     Indication: RENAL IMPAIRMENT
     Route: 048
     Dates: start: 20170523
  4. VELTASSA [Suspect]
     Active Substance: PATIROMER
     Route: 048
     Dates: start: 20180519, end: 201903
  5. AMLODIPINE [Concomitant]
     Active Substance: AMLODIPINE BESYLATE
  6. GLIPIZIDE. [Concomitant]
     Active Substance: GLIPIZIDE
  7. OMEGA 3 [Concomitant]
     Active Substance: OMEGA-3 FATTY ACIDS
  8. ADVAIR DISKUS [Concomitant]
     Active Substance: FLUTICASONE PROPIONATE\SALMETEROL XINAFOATE
     Dosage: 100/50
  9. ZYRTEC [Concomitant]
     Active Substance: CETIRIZINE HYDROCHLORIDE
  10. SPIRONOLACTONE. [Concomitant]
     Active Substance: SPIRONOLACTONE
  11. VELTASSA [Suspect]
     Active Substance: PATIROMER
     Indication: GLOMERULAR FILTRATION RATE DECREASED
     Dosage: 2 PACKETS
     Dates: start: 201802
  12. PREDNISONE. [Concomitant]
     Active Substance: PREDNISONE
  13. BENICAR [Concomitant]
     Active Substance: OLMESARTAN MEDOXOMIL
     Dosage: 20 MG TO 40 MG
  14. PRORENAL+D [Concomitant]
  15. VELTASSA [Suspect]
     Active Substance: PATIROMER
     Dosage: 1 PACKET
     Route: 048
     Dates: start: 201704
  16. HYDROCODONE BITARTRATE. [Concomitant]
     Active Substance: HYDROCODONE BITARTRATE
  17. BENICAR [Concomitant]
     Active Substance: OLMESARTAN MEDOXOMIL
  18. PYRIDOSTIGMINE [Concomitant]
     Active Substance: PYRIDOSTIGMINE
  19. CARVEDILOL. [Concomitant]
     Active Substance: CARVEDILOL

REACTIONS (7)
  - Product dose omission [Not Recovered/Not Resolved]
  - Proteinuria [Not Recovered/Not Resolved]
  - Flatulence [Not Recovered/Not Resolved]
  - Diarrhoea [Recovered/Resolved]
  - Product use in unapproved indication [Unknown]
  - Off label use [Unknown]
  - Renal impairment [Not Recovered/Not Resolved]

NARRATIVE: CASE EVENT DATE: 201704
